FAERS Safety Report 7427186-9 (Version None)
Quarter: 2011Q2

REPORT INFORMATION
  Report Type: 
  Country: None (occurrence: None)
  Receive Date: 20110420
  Receipt Date: 20110407
  Transmission Date: 20111010
  Serious: Yes (Other)
  Sender: FDA-Public Use
  Company Number: US-JNJFOC-20110306476

PATIENT
  Age: 37 Year
  Sex: Male
  Weight: 150.6 kg

DRUGS (13)
  1. REMICADE [Suspect]
     Route: 042
  2. ZYRTEC [Concomitant]
     Indication: PREMEDICATION
  3. REMICADE [Suspect]
     Dosage: 1 DOSE TOTAL
     Route: 042
  4. REMICADE [Suspect]
     Indication: POLYARTHRITIS
     Route: 042
  5. REMICADE [Suspect]
     Indication: CROHN'S DISEASE
     Route: 042
  6. REMICADE [Suspect]
     Route: 042
  7. REMICADE [Suspect]
     Route: 042
  8. REMICADE [Suspect]
     Route: 042
  9. REMICADE [Suspect]
     Route: 042
  10. REMICADE [Suspect]
     Dosage: 1 DOSE TOTAL
     Route: 042
  11. ACETAMINOPHEN [Concomitant]
     Indication: PREMEDICATION
  12. REMICADE [Suspect]
     Route: 042
  13. SOLU-CORTEF [Concomitant]
     Indication: PREMEDICATION

REACTIONS (8)
  - SYNCOPE [None]
  - FLUSHING [None]
  - BLOOD PRESSURE DECREASED [None]
  - INFUSION RELATED REACTION [None]
  - DRUG INEFFECTIVE [None]
  - NAUSEA [None]
  - CHEST DISCOMFORT [None]
  - VOMITING [None]
